FAERS Safety Report 5679663-9 (Version None)
Quarter: 2008Q1

REPORT INFORMATION
  Report Type: 
  Country: None (occurrence: None)
  Receive Date: 20080321
  Receipt Date: 20080307
  Transmission Date: 20080703
  Serious: Yes (Life-Threatening, Other)
  Sender: FDA-Public Use
  Company Number: US019531

PATIENT
  Age: 53 Year
  Sex: Male

DRUGS (8)
  1. TRISENOX [Suspect]
     Indication: ACUTE PROMYELOCYTIC LEUKAEMIA
     Dosage: 8.25 MG QD INTRAVENOUS DRIP
     Route: 041
     Dates: start: 20070119, end: 20070211
  2. FUROSEMIDE [Suspect]
     Dosage: 20 MG QD INTRAVENOUS
     Route: 042
     Dates: start: 20070120, end: 20070129
  3. IDARUBICIN HCL [Concomitant]
  4. DANAPAROID SODIUM [Concomitant]
  5. MEROPENEM TRIHYDRATE [Concomitant]
  6. CEFEPIME DIHYDROCHLORIDE [Concomitant]
  7. ISEPAMICIN SULFATE [Concomitant]
  8. MICAFUNGIN SODIUM [Concomitant]

REACTIONS (15)
  - ACUTE PROMYELOCYTIC LEUKAEMIA DIFFERENTIATION SYNDROME [None]
  - ASCITES [None]
  - BLOOD CALCIUM DECREASED [None]
  - BLOOD FIBRINOGEN INCREASED [None]
  - BLOOD POTASSIUM DECREASED [None]
  - ELECTROCARDIOGRAM QT PROLONGED [None]
  - FIBRIN DEGRADATION PRODUCTS INCREASED [None]
  - LUNG DISORDER [None]
  - NEUROPATHY PERIPHERAL [None]
  - PANCYTOPENIA [None]
  - PARALYSIS [None]
  - PLEURAL EFFUSION [None]
  - RESPIRATORY FAILURE [None]
  - SEPSIS [None]
  - WEIGHT INCREASED [None]
